FAERS Safety Report 7458107-0 (Version None)
Quarter: 2011Q1

REPORT INFORMATION
  Report Type: 
  Country: None (occurrence: None)
  Receive Date: 20110302
  Receipt Date: 20101018
  Transmission Date: 20110831
  Serious: Yes (Other)
  Sender: FDA-Public Use
  Company Number: 163-21880-10061870

PATIENT
  Age: 79 Year
  Sex: Male
  Weight: 73.9363 kg

DRUGS (9)
  1. REVLIMID [Suspect]
  2. FLU VACCINE (VACCINES) [Concomitant]
  3. REVLIMID [Suspect]
     Indication: MULTIPLE MYELOMA
     Dosage: 25 MG, 1 IN 1 D, PO; 25 MG, DAILY X 3 WEEKS/OFF 1 WEEK, PO; 25 MG, QOD, PO
     Route: 048
     Dates: start: 20090824, end: 20091104
  4. REVLIMID [Suspect]
     Indication: MULTIPLE MYELOMA
     Dosage: 25 MG, 1 IN 1 D, PO; 25 MG, DAILY X 3 WEEKS/OFF 1 WEEK, PO; 25 MG, QOD, PO
     Route: 048
     Dates: start: 20100607, end: 20100819
  5. REVLIMID [Suspect]
     Indication: MULTIPLE MYELOMA
     Dosage: 25 MG, 1 IN 1 D, PO; 25 MG, DAILY X 3 WEEKS/OFF 1 WEEK, PO; 25 MG, QOD, PO
     Route: 048
     Dates: start: 20090108
  6. DECADRON [Concomitant]
  7. PRILOSEC [Concomitant]
  8. ARANESP [Concomitant]
  9. ASPIRIN [Concomitant]

REACTIONS (4)
  - TREATMENT FAILURE [None]
  - PALMAR-PLANTAR ERYTHRODYSAESTHESIA SYNDROME [None]
  - RENAL FAILURE [None]
  - PANCYTOPENIA [None]
